FAERS Safety Report 5197203-8 (Version None)
Quarter: 2007Q1

REPORT INFORMATION
  Report Type: 
  Country: None (occurrence: None)
  Receive Date: 20070103
  Receipt Date: 20061221
  Transmission Date: 20070707
  Serious: Yes (Death, Hospitalization)
  Sender: FDA-Public Use
  Company Number: IT-ELI_LILLY_AND_COMPANY-IT200601003265

PATIENT
  Age: 50 Year
  Sex: Male

DRUGS (7)
  1. NAVOBAN                                 /SCH/ [Concomitant]
  2. TRIMETON [Concomitant]
  3. NIZAX [Concomitant]
  4. ALIMTA [Suspect]
     Indication: LUNG CARCINOMA CELL TYPE UNSPECIFIED RECURRENT
     Dosage: 500 MG/M2, OTHER
     Route: 042
     Dates: start: 20060105, end: 20060105
  5. FOLIC ACID [Concomitant]
     Indication: PROPHYLAXIS
     Dates: start: 20051201, end: 20060110
  6. VITAMIN B-12 [Concomitant]
     Indication: PROPHYLAXIS
  7. SOLDESAM [Concomitant]
     Indication: METASTASES TO CENTRAL NERVOUS SYSTEM
     Dosage: 4 MG, DAILY (1/D)
     Route: 048

REACTIONS (4)
  - CARDIAC FAILURE [None]
  - INTESTINAL PERFORATION [None]
  - LEUKOPENIA [None]
  - METABOLIC DISORDER [None]
